FAERS Safety Report 9225615 (Version 1)
Quarter: 2013Q2

REPORT INFORMATION
  Report Type: Spontaneous
  Country: DE (occurrence: DE)
  Receive Date: 20130411
  Receipt Date: 20130411
  Transmission Date: 20140414
  Serious: Yes (Life-Threatening, Hospitalization, Disabling)
  Sender: FDA-Public Use
  Company Number: DE-BAYER-2013-042702

PATIENT
  Age: 27 Year
  Sex: Female

DRUGS (2)
  1. PETIBELLE [Suspect]
     Indication: ORAL CONTRACEPTION
     Dosage: 1 DF, QD
     Route: 048
     Dates: end: 201012
  2. NOVASTEP [Suspect]
     Indication: ORAL CONTRACEPTION
     Dosage: 1 DF, QD
     Dates: start: 2011

REACTIONS (16)
  - Ruptured cerebral aneurysm [Recovered/Resolved]
  - Subarachnoid haemorrhage [Recovered/Resolved]
  - Procedural haemorrhage [Recovered/Resolved]
  - Cerebral vasoconstriction [Recovered/Resolved]
  - Brain oedema [Recovered/Resolved]
  - Bacterial test positive [Recovered/Resolved]
  - Epilepsy [Not Recovered/Not Resolved]
  - Coma [Recovered/Resolved]
  - Headache [Recovered/Resolved]
  - Hemiparesis [Recovered/Resolved]
  - Cognitive disorder [Recovered/Resolved]
  - Apraxia [Recovered/Resolved]
  - Apathy [Recovered/Resolved]
  - Dysmenorrhoea [Not Recovered/Not Resolved]
  - Menstruation irregular [Not Recovered/Not Resolved]
  - Mood altered [Not Recovered/Not Resolved]
